FAERS Safety Report 6719820-3 (Version None)
Quarter: 2010Q2

REPORT INFORMATION
  Report Type: 
  Country: None (occurrence: None)
  Receive Date: 20100505
  Receipt Date: 20100422
  Transmission Date: 20101027
  Serious: Yes (Other)
  Sender: FDA-Public Use
  Company Number: 1000013499

PATIENT
  Sex: Female

DRUGS (1)
  1. ESCITALOPRAM [Suspect]
     Dosage: (5 MG ) (10 MG) (5 MG)

REACTIONS (5)
  - AGITATION [None]
  - ANXIETY [None]
  - HOSTILITY [None]
  - MALAISE [None]
  - NEGATIVE THOUGHTS [None]
